FAERS Safety Report 12594355 (Version 1)
Quarter: 2016Q3

REPORT INFORMATION
  Report Type: Spontaneous
  Country: US (occurrence: US)
  Receive Date: 20160726
  Receipt Date: 20160726
  Transmission Date: 20161109
  Serious: Yes (Death, Hospitalization)
  Sender: FDA-Public Use
  Company Number: US-UNITED THERAPEUTICS-UNT-2016-000149

PATIENT
  Sex: Female

DRUGS (1)
  1. REMODULIN [Suspect]
     Active Substance: TREPROSTINIL
     Indication: PULMONARY ARTERIAL HYPERTENSION
     Dosage: 0.0395 ?G/KG, CONTINUING
     Route: 058
     Dates: start: 20151122

REACTIONS (3)
  - Dyspnoea [Unknown]
  - Asthenia [Unknown]
  - Pulmonary arterial pressure increased [Fatal]

NARRATIVE: CASE EVENT DATE: 20160102
